FAERS Safety Report 6193859-1 (Version None)
Quarter: 2009Q2

REPORT INFORMATION
  Report Type: 
  Country: None (occurrence: None)
  Receive Date: 20090518
  Receipt Date: 20090310
  Transmission Date: 20091009
  Serious: No
  Sender: FDA-Public Use
  Company Number: FR-B.I. PHARMACEUTICALS,INC./RIDGEFIELD-2009-BP-03004YA

PATIENT
  Sex: Male
  Weight: 80 kg

DRUGS (2)
  1. TAMSULOSIN HCL [Suspect]
     Indication: DYSURIA
     Route: 048
     Dates: start: 20090127, end: 20090227
  2. OFLOXACIN [Suspect]
     Indication: URINARY TRACT INFECTION
     Route: 048
     Dates: start: 20090218, end: 20090228

REACTIONS (5)
  - FALL [None]
  - ORTHOSTATIC HYPOTENSION [None]
  - POTENTIATING DRUG INTERACTION [None]
  - SYNCOPE [None]
  - URINARY TRACT INFECTION [None]
